FAERS Safety Report 16579479 (Version 1)
Quarter: 2019Q3

REPORT INFORMATION
  Report Type: Spontaneous
  Country: US (occurrence: US)
  Receive Date: 20190716
  Receipt Date: 20190716
  Transmission Date: 20191004
  Serious: Yes (Other)
  Sender: FDA-Public Use
  Company Number: US-PFIZER INC-2019299872

PATIENT
  Age: 44 Year
  Sex: Female

DRUGS (2)
  1. METHOTREXATE SODIUM. [Suspect]
     Active Substance: METHOTREXATE SODIUM
     Indication: PSORIATIC ARTHROPATHY
     Dosage: 12.5 MG, WEEKLY
     Route: 030
     Dates: start: 20190630
  2. FOLIC ACID. [Suspect]
     Active Substance: FOLIC ACID
     Indication: NAUSEA
     Dosage: 8 UG, ONCE A DAY
     Route: 048
     Dates: start: 201906

REACTIONS (3)
  - Petechiae [Recovering/Resolving]
  - Hypersensitivity [Unknown]
  - Nausea [Recovering/Resolving]

NARRATIVE: CASE EVENT DATE: 201907
